FAERS Safety Report 14953892 (Version 1)
Quarter: 2018Q2

REPORT INFORMATION
  Report Type: Spontaneous
  Country: US (occurrence: US)
  Receive Date: 20180530
  Receipt Date: 20180530
  Transmission Date: 20180711
  Serious: No
  Sender: FDA-Public Use
  Company Number: US-BAYER-2018-101377

PATIENT
  Age: 70 Year
  Sex: Female
  Weight: 65.99 kg

DRUGS (1)
  1. ALEVE [Suspect]
     Active Substance: NAPROXEN SODIUM
     Indication: PAIN
     Dosage: 2 DF, BID
     Route: 048
     Dates: start: 20180503

REACTIONS (3)
  - Incorrect dosage administered [None]
  - Product prescribing issue [Unknown]
  - Product use issue [None]

NARRATIVE: CASE EVENT DATE: 20180503
